FAERS Safety Report 4943744-5 (Version None)
Quarter: 2006Q2

REPORT INFORMATION
  Report Type: 
  Country: None (occurrence: None)
  Receive Date: 20060310
  Receipt Date: 20060228
  Transmission Date: 20061013
  Serious: Yes (Hospitalization)
  Sender: FDA-Public Use
  Company Number: 2006017877

PATIENT
  Age: 92 Year
  Sex: Female

DRUGS (6)
  1. ZOLOFT [Suspect]
     Indication: DYSTHYMIC DISORDER
     Dosage: 50 MG (50 MG, 1 IN 1 D), ORAL
     Route: 048
  2. NEURONTIN [Suspect]
     Indication: EPILEPSY
     Dosage: 300 MG (100 MG, 3 IN 1 D), ORAL
     Route: 048
  3. CIFLOX (CIPROFLOXACIN) [Suspect]
     Indication: PROPHYLACTIC CHEMOTHERAPY
     Dosage: 500 MG (1 IN 1 D), ORAL
     Route: 048
  4. TRAMADOL HCL [Suspect]
     Indication: PAIN IN EXTREMITY
     Dosage: 200 MG (1 IN 1 D), INTRAVENOUS
     Route: 042
  5. LORAZEPAM [Suspect]
     Indication: ANXIETY
     Dosage: 1 MG (1 MG, 1 IN 1 D), ORAL
     Route: 048
  6. TIENAM (CILASTATIN, IMIPENEM) [Suspect]
     Indication: PROPHYLACTIC CHEMOTHERAPY
     Dosage: 1000 MG (1 IN 1 D), INTRAVENOUS
     Route: 042

REACTIONS (1)
  - MYOCLONUS [None]
